FAERS Safety Report 6957026-3 (Version None)
Quarter: 2010Q3

REPORT INFORMATION
  Report Type: 
  Country: None (occurrence: None)
  Receive Date: 20100827
  Receipt Date: 20100827
  Transmission Date: 20110219
  Serious: Yes (Hospitalization)
  Sender: FDA-Public Use
  Company Number: None

PATIENT
  Age: 48 Year
  Sex: Female

DRUGS (1)
  1. BENADRYL [Suspect]
     Dosage: 25MG X 1 IV
     Route: 042

REACTIONS (7)
  - CHILLS [None]
  - CLONUS [None]
  - CONVULSION [None]
  - DIZZINESS [None]
  - HYPERHIDROSIS [None]
  - LOSS OF CONSCIOUSNESS [None]
  - SYNCOPE [None]
